FAERS Safety Report 4799921-X (Version None)
Quarter: 2005Q4

REPORT INFORMATION
  Report Type: 
  Country: None (occurrence: None)
  Receive Date: 20051017
  Receipt Date: 20050908
  Transmission Date: 20060501
  Serious: Yes (Life-Threatening, Hospitalization)
  Sender: FDA-Public Use
  Company Number: JP-BOEHRINGER INGELHEIM PHARMACEUTICALS, INC.-2005-BP-15865NB

PATIENT
  Sex: Female
  Weight: 16 kg

DRUGS (2)
  1. CATAPRES [Suspect]
     Indication: LABORATORY TEST
     Route: 048
     Dates: start: 20050815, end: 20050815
  2. HEPARIN NA LOCK (HEPARIN SODIUM) [Concomitant]
     Indication: THROMBOSIS PROPHYLAXIS
     Route: 042
     Dates: start: 20050815, end: 20050815

REACTIONS (6)
  - FALL [None]
  - HAEMOPTYSIS [None]
  - HEART RATE DECREASED [None]
  - OXYGEN SATURATION DECREASED [None]
  - PULMONARY OEDEMA [None]
  - SHOCK [None]
